FAERS Safety Report 19782574 (Version 1)
Quarter: 2021Q3

REPORT INFORMATION
  Report Type: Spontaneous
  Country: US (occurrence: US)
  Receive Date: 20210902
  Receipt Date: 20210902
  Transmission Date: 20211014
  Serious: No
  Sender: FDA-Public Use
  Company Number: US-ENDO PHARMACEUTICALS INC-2020-005862

PATIENT
  Sex: Female
  Weight: 71.67 kg

DRUGS (2)
  1. PREDNISONE. [Suspect]
     Active Substance: PREDNISONE
     Dosage: 4 DF, BID
     Route: 048
  2. PREDNISONE. [Suspect]
     Active Substance: PREDNISONE
     Indication: RHEUMATOID ARTHRITIS
     Dosage: 5 MG IN THE MORNING AND 5 MG AT NIGHT
     Route: 048

REACTIONS (1)
  - Hyperphagia [Unknown]

NARRATIVE: CASE EVENT DATE: 2000
